FAERS Safety Report 7800215-6 (Version None)
Quarter: 2011Q4

REPORT INFORMATION
  Report Type: 
  Country: None (occurrence: None)
  Receive Date: 20111006
  Receipt Date: 20110930
  Transmission Date: 20120403
  Serious: Yes (Death)
  Sender: FDA-Public Use
  Company Number: SK-CELGENEUS-260-50794-11092472

PATIENT
  Age: 70 Year
  Sex: Female

DRUGS (3)
  1. EPOGEN [Concomitant]
     Route: 065
  2. VIDAZA [Suspect]
     Route: 050
  3. RED BLOOD CELLS [Concomitant]
     Route: 065

REACTIONS (1)
  - CEREBROVASCULAR ACCIDENT [None]
